FAERS Safety Report 5824650-0 (Version None)
Quarter: 2008Q3

REPORT INFORMATION
  Report Type: 
  Country: None (occurrence: None)
  Receive Date: 20080721
  Receipt Date: 20080710
  Transmission Date: 20090109
  Serious: Yes (Death)
  Sender: FDA-Public Use
  Company Number: CERZ-1000213

PATIENT
  Age: 20 Month
  Sex: Female
  Weight: 7 kg

DRUGS (1)
  1. CEREZYME [Suspect]
     Indication: GAUCHER'S DISEASE
     Dosage: 57.14 U/KG, Q2W, INTRAVENOUS
     Route: 042
     Dates: start: 20080419, end: 20080527

REACTIONS (4)
  - HAEMODYNAMIC INSTABILITY [None]
  - HYPERTENSION [None]
  - HYPOTENSION [None]
  - NERVOUS SYSTEM DISORDER [None]
